FAERS Safety Report 16237577 (Version 18)
Quarter: 2022Q3

REPORT INFORMATION
  Report Type: Report from Study
  Country: CH (occurrence: CH)
  Receive Date: 20190425
  Receipt Date: 20220918
  Transmission Date: 20221027
  Serious: Yes (Hospitalization, Other)
  Sender: FDA-Public Use
  Company Number: PHHY2019CH091132

PATIENT
  Age: 45 Year
  Sex: Male

DRUGS (11)
  1. COSENTYX [Suspect]
     Active Substance: SECUKINUMAB
     Indication: Psoriasis
     Dosage: 300 MG, UNK
     Route: 058
     Dates: start: 20171009, end: 20171105
  2. COSENTYX [Suspect]
     Active Substance: SECUKINUMAB
     Dosage: 300 MG, UNK
     Route: 058
     Dates: start: 20171106, end: 20190401
  3. COSENTYX [Suspect]
     Active Substance: SECUKINUMAB
     Dosage: 300 MG, UNK
     Route: 058
     Dates: start: 20190402, end: 20191029
  4. COSENTYX [Suspect]
     Active Substance: SECUKINUMAB
     Dosage: 300 MG,UNK
     Route: 058
     Dates: start: 20200203, end: 20200301
  5. COSENTYX [Suspect]
     Active Substance: SECUKINUMAB
     Dosage: 300 MG (EVERY 6 WEEKS)
     Route: 058
     Dates: start: 20200302, end: 20211213
  6. CRESTOR [Concomitant]
     Active Substance: ROSUVASTATIN CALCIUM
     Indication: Hypercholesterolaemia
     Dosage: 20 MG, QD
     Route: 048
     Dates: start: 20120424
  7. CRESTOR [Concomitant]
     Active Substance: ROSUVASTATIN CALCIUM
     Dosage: 20 MG, QD
     Route: 048
     Dates: start: 20140424
  8. DAIVOBET [Concomitant]
     Active Substance: BETAMETHASONE DIPROPIONATE\CALCIPOTRIENE
     Indication: Psoriasis
     Dosage: UNK (IF NEEDED 2 TIMES PER WEEK)
     Route: 061
     Dates: start: 20200203
  9. ZINKPASTE [Concomitant]
     Indication: Product used for unknown indication
     Dosage: UNK, PRN (APPLICATION AS NEEDED)
     Route: 061
     Dates: start: 20200203
  10. TACROLIMUS [Concomitant]
     Active Substance: TACROLIMUS
     Indication: Product used for unknown indication
     Dosage: UNK, QD (1 APPLICATION DAILY)
     Route: 065
     Dates: start: 20200203
  11. FOLIC ACID [Concomitant]
     Active Substance: FOLIC ACID
     Indication: Product used for unknown indication
     Dosage: 5 MG, QW
     Route: 048
     Dates: start: 202106

REACTIONS (13)
  - Panic attack [Recovered/Resolved]
  - Muscular weakness [Recovering/Resolving]
  - Neck pain [Recovered/Resolved]
  - Arthralgia [Recovering/Resolving]
  - Ear infection fungal [Recovered/Resolved]
  - Pancreatitis [Recovered/Resolved]
  - Amylase abnormal [Recovered/Resolved]
  - Hyperventilation [Recovered/Resolved]
  - Nausea [Not Recovered/Not Resolved]
  - Anxiety [Not Recovered/Not Resolved]
  - Reflux gastritis [Recovering/Resolving]
  - Dermal cyst [Recovered/Resolved]
  - Weight decreased [Not Recovered/Not Resolved]

NARRATIVE: CASE EVENT DATE: 20180915
